FAERS Safety Report 5637455-0 (Version None)
Quarter: 2008Q1

REPORT INFORMATION
  Report Type: 
  Country: None (occurrence: None)
  Receive Date: 20080225
  Receipt Date: 20080219
  Transmission Date: 20080703
  Serious: Yes (Other)
  Sender: FDA-Public Use
  Company Number: US-BOEHRINGER INGELHEIM GMBH, GERMANY-2008-BP-02500BP

PATIENT
  Age: 66 Year
  Sex: Male

DRUGS (6)
  1. FLOMAX [Suspect]
     Indication: BENIGN PROSTATIC HYPERPLASIA
     Route: 048
     Dates: start: 20020101
  2. SYNTHROID [Concomitant]
  3. TEGRETOL [Concomitant]
  4. DEPAKOTE [Concomitant]
  5. MYCALIM [Concomitant]
  6. ALLEGRA [Concomitant]

REACTIONS (3)
  - CATARACT [None]
  - NOCTURIA [None]
  - PROSTATE CANCER [None]
